FAERS Safety Report 17095667 (Version 1)
Quarter: 2019Q4

REPORT INFORMATION
  Report Type: Spontaneous
  Country: US (occurrence: US)
  Receive Date: 20191201
  Receipt Date: 20191201
  Transmission Date: 20200122
  Serious: No
  Sender: FDA-Public Use
  Company Number: US-VERTEX PHARMACEUTICALS-2019-011907

PATIENT
  Sex: Male

DRUGS (1)
  1. SYMDEKO [Suspect]
     Active Substance: IVACAFTOR\TEZACAFTOR
     Indication: CYSTIC FIBROSIS
     Dosage: 1 YELLOW TABLET IN AM AND 1 BLUE TABLET IN PM
     Route: 048
     Dates: start: 20190316, end: 20191113

REACTIONS (2)
  - Productive cough [Recovered/Resolved]
  - Sputum discoloured [Recovered/Resolved]
